FAERS Safety Report 10952264 (Version 1)
Quarter: 2015Q1

REPORT INFORMATION
  Report Type: Spontaneous
  Country: US (occurrence: None)
  Receive Date: 20150324
  Receipt Date: 20150324
  Transmission Date: 20150721
  Serious: No
  Sender: FDA-Public Use
  Company Number: None

PATIENT
  Age: 55 Year
  Sex: Male
  Weight: 81.65 kg

DRUGS (6)
  1. NIACIN. [Concomitant]
     Active Substance: NIACIN
  2. VENLAFAXINE [Suspect]
     Active Substance: VENLAFAXINE HYDROCHLORIDE
     Indication: BLOOD PRESSURE
     Route: 048
     Dates: start: 20150227, end: 20150323
  3. VENLAFAXINE [Suspect]
     Active Substance: VENLAFAXINE HYDROCHLORIDE
     Indication: ANXIETY
     Route: 048
     Dates: start: 20150227, end: 20150323
  4. METOPROLOL [Concomitant]
     Active Substance: METOPROLOL
  5. MELATONIN [Concomitant]
     Active Substance: MELATONIN
  6. MULTI VITAMIN FOR MEN AGED 50+ [Concomitant]

REACTIONS (4)
  - Nervousness [None]
  - Prostatomegaly [None]
  - Irritability [None]
  - Dysuria [None]

NARRATIVE: CASE EVENT DATE: 20150323
